FAERS Safety Report 5824791-8 (Version None)
Quarter: 2008Q3

REPORT INFORMATION
  Report Type: 
  Country: None (occurrence: None)
  Receive Date: 20080728
  Receipt Date: 20080723
  Transmission Date: 20090109
  Serious: Yes (Death)
  Sender: FDA-Public Use
  Company Number: US-AMGEN-QUU294720

PATIENT
  Sex: Female
  Weight: 61.3 kg

DRUGS (7)
  1. ARANESP [Suspect]
     Indication: ANAEMIA OF MALIGNANT DISEASE
     Route: 058
     Dates: start: 20080428, end: 20080513
  2. ARANESP [Suspect]
  3. NEULASTA [Suspect]
     Indication: CHEMOTHERAPY
     Route: 058
     Dates: start: 20080318, end: 20080513
  4. CYTOXAN [Suspect]
     Dates: start: 20080317, end: 20080512
  5. TAXOTERE [Suspect]
     Dates: start: 20080317, end: 20080512
  6. ALOXI [Suspect]
     Dates: start: 20080317, end: 20080512
  7. EMEND [Suspect]
     Dates: start: 20080414, end: 20080512

REACTIONS (1)
  - INTERSTITIAL LUNG DISEASE [None]
